FAERS Safety Report 11329012 (Version 1)
Quarter: 2015Q3

REPORT INFORMATION
  Report Type: Spontaneous
  Country: US (occurrence: US)
  Receive Date: 20150802
  Receipt Date: 20150802
  Transmission Date: 20151125
  Serious: No
  Sender: FDA-Public Use
  Company Number: US-BAYER-2015-390190

PATIENT
  Age: 83 Year
  Sex: Female

DRUGS (1)
  1. MIRALAX [Suspect]
     Active Substance: POLYETHYLENE GLYCOL 3350
     Dosage: 1 U, QD
     Route: 048
     Dates: end: 201507

REACTIONS (3)
  - Abnormal faeces [Not Recovered/Not Resolved]
  - Faeces soft [Not Recovered/Not Resolved]
  - Product use issue [Unknown]
